FAERS Safety Report 10102503 (Version 1)
Quarter: 2014Q2

REPORT INFORMATION
  Report Type: Spontaneous
  Country: AT (occurrence: AT)
  Receive Date: 20140424
  Receipt Date: 20140424
  Transmission Date: 20141212
  Serious: Yes (Death)
  Sender: FDA-Public Use
  Company Number: AT-PFIZER INC-2014110709

PATIENT
  Age: 49 Year
  Sex: Female
  Weight: 45 kg

DRUGS (4)
  1. VORICONAZOLE [Suspect]
     Indication: ANTIFUNGAL TREATMENT
     Dosage: 9 MG/KG, DAILY
  2. FLUCONAZOLE [Suspect]
     Indication: ANTIFUNGAL TREATMENT
     Dosage: 4.5 MG/KG, DAILY
     Route: 051
  3. CASPOFUNGIN [Suspect]
     Indication: ANTIFUNGAL TREATMENT
     Dosage: 50 MG, DAILY
  4. LIPOSOMAL AMPHOTERICIN BS [Suspect]
     Indication: ANTIFUNGAL TREATMENT
     Dosage: 3 MG/KG, DAILY

REACTIONS (3)
  - Septic shock [Fatal]
  - Multi-organ failure [Fatal]
  - Drug ineffective [Fatal]
